FAERS Safety Report 16363987 (Version 5)
Quarter: 2019Q3

REPORT INFORMATION
  Report Type: Spontaneous
  Country: US (occurrence: US)
  Receive Date: 20190528
  Receipt Date: 20190910
  Transmission Date: 20191004
  Serious: Yes (Hospitalization, Other)
  Sender: FDA-Public Use
  Company Number: US-PFIZER INC-2019224493

PATIENT
  Age: 57 Year
  Sex: Male

DRUGS (1)
  1. SUTENT [Suspect]
     Active Substance: SUNITINIB MALATE
     Indication: RENAL CANCER
     Dosage: 50 MG, CYCLIC (28-DAY SUPPLY)
     Route: 048

REACTIONS (6)
  - Diplopia [Unknown]
  - Second primary malignancy [Unknown]
  - Pituitary tumour [Unknown]
  - Malaise [Unknown]
  - Headache [Unknown]
  - Neoplasm progression [Unknown]
